FAERS Safety Report 8740006 (Version 5)
Quarter: 2014Q3

REPORT INFORMATION
  Report Type: Report from Study
  Country: JP (occurrence: JP)
  Receive Date: 20120823
  Receipt Date: 20140908
  Transmission Date: 20150326
  Serious: Yes (Death, Life-Threatening, Hospitalization, Other)
  Sender: FDA-Public Use
  Company Number: JP-009507513-1202USA02882

PATIENT
  Age: 63 Year
  Sex: Female

DRUGS (16)
  1. MAGLAX (MAGNESIUM OXIDE) [Concomitant]
     Active Substance: MAGNESIUM OXIDE
     Indication: CONSTIPATION
     Dosage: 250 MG, TID
     Route: 048
     Dates: end: 20120111
  2. ZOLINZA [Suspect]
     Active Substance: VORINOSTAT
     Dosage: 300 MG, QD
     Route: 048
     Dates: start: 20111208, end: 20111226
  3. MINOMYCIN [Suspect]
     Active Substance: MINOCYCLINE HYDROCHLORIDE
     Indication: PAROTITIS
     Dosage: 100 MG, BID
     Route: 048
     Dates: start: 20111227, end: 20120107
  4. WARFARIN [Concomitant]
     Active Substance: WARFARIN
     Indication: DEEP VEIN THROMBOSIS
     Dosage: 1 MG, QD
     Route: 048
     Dates: start: 20111202, end: 20120111
  5. ZOLINZA [Suspect]
     Active Substance: VORINOSTAT
     Indication: MYCOSIS FUNGOIDES
     Dosage: 400 MG, QD
     Route: 048
     Dates: start: 20111110, end: 20111121
  6. LANTUS [Concomitant]
     Active Substance: INSULIN GLARGINE
     Indication: DIABETES MELLITUS
     Dosage: DAILY DOSAGE UNKNOWN
     Route: 058
     Dates: end: 20120111
  7. ZOLINZA [Suspect]
     Active Substance: VORINOSTAT
     Dosage: 300 MG, QD
     Route: 048
     Dates: start: 20120102, end: 20120114
  8. ARIXTRA [Concomitant]
     Active Substance: FONDAPARINUX SODIUM
     Indication: DEEP VEIN THROMBOSIS
     Dosage: 7.5 MG, QD
     Route: 051
     Dates: start: 20111202, end: 20111206
  9. ZOLINZA [Suspect]
     Active Substance: VORINOSTAT
     Dosage: 300 MG, QD
     Route: 048
     Dates: start: 20111129, end: 20111201
  10. CEFEPIME HYDROCHLORIDE. [Concomitant]
     Active Substance: CEFEPIME HYDROCHLORIDE
     Indication: PAROTITIS
     Dosage: 2 G, BID
     Route: 051
     Dates: start: 20111227, end: 20111231
  11. PANTETHINE [Concomitant]
     Active Substance: PANTETHINE
     Indication: CONSTIPATION
     Dosage: 200 MG, TID
     Route: 048
     Dates: end: 20120111
  12. ALLEGRA [Concomitant]
     Active Substance: FEXOFENADINE HYDROCHLORIDE
     Indication: MYCOSIS FUNGOIDES
     Dosage: 60 MG, BID
     Route: 048
     Dates: end: 20120111
  13. PARIET [Concomitant]
     Active Substance: RABEPRAZOLE SODIUM
     Indication: PROPHYLAXIS AGAINST GASTROINTESTINAL ULCER
     Dosage: 10 MG, QD
     Route: 048
     Dates: end: 20120111
  14. DIFLUCAN [Concomitant]
     Active Substance: FLUCONAZOLE
     Indication: INFECTION PROPHYLAXIS
     Dosage: 100 MG, BID
     Route: 048
     Dates: end: 20120111
  15. NOVORAPID [Concomitant]
     Active Substance: INSULIN ASPART
     Indication: DIABETES MELLITUS
     Dosage: DAILY DOSE UNKNOWN
     Route: 058
     Dates: end: 20120214
  16. LIPITOR [Concomitant]
     Active Substance: ATORVASTATIN CALCIUM
     Indication: HYPERLIPIDAEMIA
     Dosage: 10 MG, QD
     Route: 048
     Dates: end: 20120111

REACTIONS (15)
  - Parotitis [Recovered/Resolved]
  - Alanine aminotransferase increased [Recovered/Resolved]
  - Nausea [Recovered/Resolved]
  - Decreased appetite [Recovered/Resolved]
  - Platelet count decreased [Recovered/Resolved]
  - Platelet count decreased [Recovering/Resolving]
  - Disease progression [Fatal]
  - Pleural effusion [Fatal]
  - Constipation [Recovered/Resolved]
  - Deep vein thrombosis [Recovering/Resolving]
  - Constipation [Recovering/Resolving]
  - Eosinophilic pneumonia acute [Recovered/Resolved]
  - Aspartate aminotransferase increased [Recovered/Resolved]
  - Vomiting [Recovered/Resolved]
  - Platelet count decreased [Recovered/Resolved]

NARRATIVE: CASE EVENT DATE: 20111114
